FAERS Safety Report 20692652 (Version 6)
Quarter: 2023Q1

REPORT INFORMATION
  Report Type: Report from Study
  Country: US (occurrence: US)
  Receive Date: 20220409
  Receipt Date: 20230225
  Transmission Date: 20230418
  Serious: Yes (Death)
  Sender: FDA-Public Use
  Company Number: US-002147023-NVSC2022US080772

PATIENT
  Age: 62 Year
  Sex: Male

DRUGS (5)
  1. TREPROSTINIL [Suspect]
     Active Substance: TREPROSTINIL
     Indication: Pulmonary arterial hypertension
     Dosage: (40 NG/KG/MIN), CONT
     Route: 065
     Dates: start: 202105
  2. TREPROSTINIL [Suspect]
     Active Substance: TREPROSTINIL
     Dosage: 69.5 NG/KG/MIN, CONT
     Route: 042
     Dates: start: 20210527
  3. TREPROSTINIL [Suspect]
     Active Substance: TREPROSTINIL
     Dosage: 69.5 NG/KG/MIN, CONT
     Route: 042
     Dates: start: 202105
  4. TREPROSTINIL [Suspect]
     Active Substance: TREPROSTINIL
     Dosage: 69.5 NG/KG/MIN, CONT (LAST DOSE DISPENSED ON 30 JAN 2023)
     Route: 042
  5. OPSUMIT [Concomitant]
     Active Substance: MACITENTAN
     Indication: Product used for unknown indication
     Dosage: UNK (LAST DISPENSED 23 JAN 2023)
     Route: 065

REACTIONS (7)
  - Disease complication [Fatal]
  - Mood swings [Unknown]
  - Decreased appetite [Unknown]
  - Weight fluctuation [Recovered/Resolved]
  - Dehydration [Recovered/Resolved]
  - Fatigue [Not Recovered/Not Resolved]
  - Infusion site haemorrhage [Recovered/Resolved]

NARRATIVE: CASE EVENT DATE: 20220404
